FAERS Safety Report 25041641 (Version 1)
Quarter: 2025Q1

REPORT INFORMATION
  Report Type: Other
  Country: RU (occurrence: RU)
  Receive Date: 20250305
  Receipt Date: 20250305
  Transmission Date: 20250408
  Serious: Yes (Other)
  Sender: PL DEVELOPMENTS
  Company Number: RU-P+L Developments of Newyork Corporation-2172275

PATIENT
  Age: 16 Year
  Sex: Female

DRUGS (7)
  1. IBUPROFEN [Suspect]
     Active Substance: IBUPROFEN
     Indication: Product used for unknown indication
  2. LEVOTHYROXINE SODIUM [Concomitant]
     Active Substance: LEVOTHYROXINE SODIUM
  3. METHYLPREDNISOLONE [Concomitant]
     Active Substance: METHYLPREDNISOLONE
  4. PREDNISOLONE [Concomitant]
     Active Substance: PREDNISOLONE
  5. METRONIDAZOLE [Concomitant]
     Active Substance: METRONIDAZOLE
  6. OMEPRAZOLE [Concomitant]
     Active Substance: OMEPRAZOLE
     Dates: start: 20230905
  7. URSODIOL [Concomitant]
     Active Substance: URSODIOL

REACTIONS (1)
  - Angioedema [Recovered/Resolved]
